FAERS Safety Report 7391613-6 (Version None)
Quarter: 2011Q2

REPORT INFORMATION
  Report Type: 
  Country: None (occurrence: None)
  Receive Date: 20110404
  Receipt Date: 20110308
  Transmission Date: 20111010
  Serious: No
  Sender: FDA-Public Use
  Company Number: US-B.I. PHARMACEUTICALS,INC./RIDGEFIELD-2011-BP-07967BP

PATIENT
  Age: 64 Year
  Sex: Female

DRUGS (7)
  1. METFORMIN [Concomitant]
     Indication: DIABETES MELLITUS
  2. PRADAXA [Suspect]
     Indication: ATRIAL FIBRILLATION
     Dosage: 300 MG
     Route: 048
     Dates: start: 20110223
  3. LIPITOR [Concomitant]
     Indication: BLOOD CHOLESTEROL INCREASED
  4. METOPROLOL [Concomitant]
     Indication: HYPERTENSION
  5. AMARYL [Concomitant]
     Indication: DIABETES MELLITUS
  6. ASPIRIN [Concomitant]
     Indication: ATRIAL FIBRILLATION
     Dosage: 81 MG
  7. NOVALOG [Concomitant]
     Indication: DIABETES MELLITUS

REACTIONS (1)
  - HEADACHE [None]
